FAERS Safety Report 15703183 (Version 4)
Quarter: 2020Q3

REPORT INFORMATION
  Report Type: Spontaneous
  Country: CH (occurrence: CH)
  Receive Date: 20181210
  Receipt Date: 20200706
  Transmission Date: 20201102
  Serious: Yes (Death, Life-Threatening, Hospitalization, Disabling, Other)
  Sender: FDA-Public Use
  Company Number: CH-BRISTOL-MYERS SQUIBB COMPANY-BMS-2018-114294

PATIENT
  Age: 27 Year
  Sex: Male

DRUGS (2)
  1. OPDIVO [Suspect]
     Active Substance: NIVOLUMAB
     Indication: METASTATIC CHORIOCARCINOMA
     Dosage: 200 MG, ONLY GIVEN ONCE ; IN TOTAL
     Route: 065
     Dates: start: 20170619
  2. LYRICA [Concomitant]
     Active Substance: PREGABALIN
     Indication: PRODUCT USED FOR UNKNOWN INDICATION
     Dosage: 150 MG, BID
     Route: 065

REACTIONS (3)
  - Product use in unapproved indication [Unknown]
  - Death [Fatal]
  - Systemic inflammatory response syndrome [Recovered/Resolved with Sequelae]

NARRATIVE: CASE EVENT DATE: 20170626
